FAERS Safety Report 8011494-7 (Version None)
Quarter: 2011Q4

REPORT INFORMATION
  Report Type: 
  Country: None (occurrence: None)
  Receive Date: 20111228
  Receipt Date: 20111225
  Transmission Date: 20120403
  Serious: No
  Sender: FDA-Public Use
  Company Number: US-PFIZER INC-2011312850

PATIENT
  Sex: Female

DRUGS (2)
  1. IBUPROFEN (ADVIL) [Suspect]
     Indication: TOOTHACHE
     Dosage: 200 MG, UNK
     Route: 048
     Dates: start: 20111225
  2. ACETAMINOPHEN [Concomitant]
     Indication: TOOTHACHE
     Dosage: 1000 MG, UNK
     Route: 048
     Dates: start: 20111224

REACTIONS (1)
  - URTICARIA [None]
